FAERS Safety Report 23930411 (Version 1)
Quarter: 2024Q2

REPORT INFORMATION
  Report Type: Spontaneous
  Country: US (occurrence: US)
  Receive Date: 20240602
  Receipt Date: 20240602
  Transmission Date: 20240715
  Serious: No
  Sender: FDA-Public Use
  Company Number: US-AMGEN-USASP2024106676

PATIENT

DRUGS (1)
  1. MVASI [Suspect]
     Active Substance: BEVACIZUMAB-AWWB
     Indication: Product used for unknown indication
     Dosage: 376.5 MILLIGRAMS ( 1X 400 MG VIAL )
     Route: 065

REACTIONS (2)
  - Haemorrhage [Unknown]
  - Unevaluable event [Unknown]
